FAERS Safety Report 10057668 (Version 1)
Quarter: 2014Q2

REPORT INFORMATION
  Report Type: Spontaneous
  Country: US (occurrence: US)
  Receive Date: 20140404
  Receipt Date: 20140404
  Transmission Date: 20141212
  Serious: No
  Sender: FDA-Public Use
  Company Number: US-BIOGENIDEC-2014BI030745

PATIENT
  Age: 30 Year
  Sex: Female

DRUGS (1)
  1. TYSABRI [Suspect]
     Indication: MULTIPLE SCLEROSIS
     Route: 042
     Dates: start: 20090529

REACTIONS (6)
  - Vertigo [Unknown]
  - Eye pain [Unknown]
  - Post lumbar puncture syndrome [Not Recovered/Not Resolved]
  - Stress [Unknown]
  - Confusional state [Unknown]
  - Headache [Not Recovered/Not Resolved]
